FAERS Safety Report 6912629 (Version 6)
Quarter: 2019Q2

REPORT INFORMATION
  Report Type: Spontaneous
  Country: FR (occurrence: FR)
  Receive Date: 20090218
  Receipt Date: 20190429
  Transmission Date: 20190711
  Serious: Yes (Hospitalization)
  Sender: FDA-Public Use
  Company Number: FR-PFIZER INC-FR-WYE-H08158809

PATIENT
  Age: 71 Year
  Sex: Female
  Weight: 76.3 kg

DRUGS (9)
  1. PRAVASTATINE [PRAVASTATIN SODIUM] [Concomitant]
     Dosage: UNK
     Route: 065
     Dates: end: 20090104
  2. STABLON [Concomitant]
     Active Substance: TIANEPTINE
     Dosage: UNK
     Route: 065
  3. INIPOMP [Suspect]
     Active Substance: PANTOPRAZOLE SODIUM
     Dosage: UNK
     Route: 048
     Dates: end: 20090102
  4. DILTIAZEM HCL [Suspect]
     Active Substance: DILTIAZEM HYDROCHLORIDE
     Dosage: UNK
     Route: 048
     Dates: start: 20081221, end: 20081229
  5. ALDALIX [Suspect]
     Active Substance: FUROSEMIDE SODIUM\SPIRONOLACTONE
     Dosage: UNK
     Route: 048
     Dates: end: 20090104
  6. VOLTARENE (DICLOFENAC SODIUM) [Suspect]
     Active Substance: DICLOFENAC SODIUM
     Dosage: UNK
     Route: 048
     Dates: start: 200812, end: 20090102
  7. DOMPERIDONE [Suspect]
     Active Substance: DOMPERIDONE
     Dosage: UNK
     Route: 065
     Dates: end: 20090104
  8. BETAHISTINE [Concomitant]
     Active Substance: BETAHISTINE
     Dosage: UNK
     Route: 065
  9. DOMPERIDONE [Suspect]
     Active Substance: DOMPERIDONE
     Dosage: UNK
     Route: 048
     Dates: end: 20090104

REACTIONS (8)
  - Eosinophil count increased [Unknown]
  - Dermatitis exfoliative generalised [Not Recovered/Not Resolved]
  - Rash maculo-papular [Unknown]
  - Basal cell carcinoma [Unknown]
  - Rash erythematous [Unknown]
  - Insomnia [Unknown]
  - Pruritus [Unknown]
  - Hyperkeratosis [Unknown]

NARRATIVE: CASE EVENT DATE: 20081230
